FAERS Safety Report 6582986-2 (Version None)
Quarter: 2010Q1

REPORT INFORMATION
  Report Type: 
  Country: None (occurrence: None)
  Receive Date: 20100216
  Receipt Date: 20100120
  Transmission Date: 20100710
  Serious: Yes (Death)
  Sender: FDA-Public Use
  Company Number: UA-ROCHE-577809

PATIENT
  Sex: Female
  Weight: 58 kg

DRUGS (2)
  1. BEVACIZUMAB [Suspect]
     Dosage: 870 MG, Q3W
     Route: 042
     Dates: start: 20080403
  2. PACLITAXEL [Concomitant]
     Dosage: UNK
     Dates: start: 20080403

REACTIONS (1)
  - CARDIAC FAILURE [None]
